FAERS Safety Report 16844477 (Version 1)
Quarter: 2019Q3

REPORT INFORMATION
  Report Type: Spontaneous
  Country: DE (occurrence: DE)
  Receive Date: 20190924
  Receipt Date: 20190924
  Transmission Date: 20191005
  Serious: Yes (Other)
  Sender: FDA-Public Use
  Company Number: DE-PFIZER INC-2019397482

PATIENT
  Age: 26 Year
  Sex: Male

DRUGS (5)
  1. OFLOXACINE [Concomitant]
     Active Substance: OFLOXACIN
     Indication: DEVELOPMENTAL GLAUCOMA
     Dosage: 3 MG/ML, 4X/DAY (APPLIED IN THE EARLY POSTOPERATIVE PERIOD)
     Route: 061
  2. MITOMYCIN C [Concomitant]
     Active Substance: MITOMYCIN
     Dosage: UNK (0.08 MG/0.4 ML; 3 MIN, ADJUNCTIVE INTRAOPERATIVE APPLICATION)
  3. ATROPINE SULFATE. [Suspect]
     Active Substance: ATROPINE SULFATE
     Indication: HYPOTONY MACULOPATHY
     Dosage: UNK (1%) (EYE DROPS)
  4. ATROPINE SULFATE. [Suspect]
     Active Substance: ATROPINE SULFATE
     Indication: HYPOTONY OF EYE
  5. DEXAMETHASONE. [Concomitant]
     Active Substance: DEXAMETHASONE
     Indication: DEVELOPMENTAL GLAUCOMA
     Dosage: 1.3 MG/ML, 4X/DAY (APPLIED IN THE EARLY POSTOPERATIVE PERIOD)
     Route: 061

REACTIONS (1)
  - Pupil fixed [Not Recovered/Not Resolved]
